FAERS Safety Report 11127667 (Version 1)
Quarter: 2015Q2

REPORT INFORMATION
  Report Type: Spontaneous
  Country: US (occurrence: US)
  Receive Date: 20150521
  Receipt Date: 20150521
  Transmission Date: 20150821
  Serious: No
  Sender: FDA-Public Use
  Company Number: US-TEVA-547067USA

PATIENT
  Sex: Female

DRUGS (2)
  1. MIMVEY [Suspect]
     Active Substance: ESTRADIOL\NORETHINDRONE ACETATE
     Indication: ABDOMINAL PAIN UPPER
  2. MIMVEY [Suspect]
     Active Substance: ESTRADIOL\NORETHINDRONE ACETATE
     Indication: HOT FLUSH
     Route: 065

REACTIONS (2)
  - Drug ineffective [Unknown]
  - Vulvovaginal dryness [Unknown]
